FAERS Safety Report 13188545 (Version 1)
Quarter: 2017Q1

REPORT INFORMATION
  Report Type: Spontaneous
  Country: FR (occurrence: FR)
  Receive Date: 20170206
  Receipt Date: 20170206
  Transmission Date: 20170428
  Serious: Yes (Other)
  Sender: FDA-Public Use
  Company Number: FR-PFIZER INC-2017045537

PATIENT
  Age: 82 Year
  Sex: Female

DRUGS (5)
  1. LOXEN [Concomitant]
     Active Substance: NICARDIPINE HYDROCHLORIDE
     Dosage: UNK
  2. ASPEGIC [Concomitant]
     Active Substance: ASPIRIN DL-LYSINE
     Dosage: UNK
  3. RAMIPRIL. [Suspect]
     Active Substance: RAMIPRIL
     Dosage: 1 DF, DAILY
     Route: 048
     Dates: start: 2016, end: 201608
  4. TRIATEC [Suspect]
     Active Substance: RAMIPRIL
     Dosage: 1 DF, DAILY
     Route: 048
     Dates: start: 201608
  5. DOLIPRANE [Concomitant]
     Active Substance: ACETAMINOPHEN
     Dosage: UNK

REACTIONS (7)
  - Insomnia [Not Recovered/Not Resolved]
  - Urinary tract infection [Unknown]
  - Blood pressure increased [Not Recovered/Not Resolved]
  - Pruritus [Not Recovered/Not Resolved]
  - Balance disorder [Not Recovered/Not Resolved]
  - Speech disorder [Not Recovered/Not Resolved]
  - Respiratory disorder [Not Recovered/Not Resolved]
